FAERS Safety Report 6443125-1 (Version None)
Quarter: 2009Q4

REPORT INFORMATION
  Report Type: 
  Country: None (occurrence: None)
  Receive Date: 20091117
  Receipt Date: 20091109
  Transmission Date: 20100525
  Serious: Yes (Death, Life-Threatening, Hospitalization, Disabling, Other)
  Sender: FDA-Public Use
  Company Number: A0809771A

PATIENT
  Age: 66 Year
  Sex: Male
  Weight: 71.4 kg

DRUGS (22)
  1. EPZICOM [Suspect]
     Indication: HIV INFECTION
     Dosage: 1TAB PER DAY
     Route: 048
     Dates: start: 20090513, end: 20090806
  2. LEXIVA [Suspect]
     Indication: HIV INFECTION
     Dosage: 700MG TWICE PER DAY
     Route: 048
     Dates: start: 20090513, end: 20090729
  3. LEXIVA [Suspect]
     Dosage: 1400G TWICE PER DAY
     Route: 048
     Dates: start: 20090729, end: 20090806
  4. COREG [Concomitant]
     Indication: DRUG USE FOR UNKNOWN INDICATION
     Route: 048
  5. NORVIR [Concomitant]
     Indication: HIV INFECTION
     Dosage: 100MG TWICE PER DAY
     Dates: start: 20090513, end: 20090729
  6. ISENTRESS [Concomitant]
     Dosage: 400MG TWICE PER DAY
     Dates: start: 20090513
  7. LIPITOR [Concomitant]
  8. COREG [Concomitant]
  9. PLAVIX [Concomitant]
  10. VIDEX [Concomitant]
     Indication: HIV INFECTION
     Dates: start: 20060101
  11. EPIVIR [Concomitant]
     Indication: HIV INFECTION
     Dates: start: 20060101
  12. PROMETHAZINE [Concomitant]
  13. SEPTRA DS [Concomitant]
  14. SODIUM BICARBONATE IN PLASTIC CONTAINER [Concomitant]
  15. PLAVIX [Concomitant]
  16. VYTORIN [Concomitant]
  17. RALTEGRAVIR [Concomitant]
  18. TYLENOL (CAPLET) [Concomitant]
  19. VITAMIN B-12 [Concomitant]
  20. ATARAX [Concomitant]
  21. ZOFRAN [Concomitant]
  22. ZANTAC [Concomitant]

REACTIONS (20)
  - ABDOMINAL PAIN [None]
  - BRONCHITIS [None]
  - COLITIS [None]
  - COLONOSCOPY [None]
  - DECREASED APPETITE [None]
  - DIARRHOEA [None]
  - DIVERTICULUM [None]
  - DRUG HYPERSENSITIVITY [None]
  - DUODENITIS [None]
  - ENDOSCOPY [None]
  - HAEMODYNAMIC INSTABILITY [None]
  - MULTI-ORGAN FAILURE [None]
  - OESOPHAGEAL CANDIDIASIS [None]
  - OESOPHAGOGASTRODUODENOSCOPY [None]
  - RASH ERYTHEMATOUS [None]
  - RASH MACULO-PAPULAR [None]
  - SERRATIA SEPSIS [None]
  - SKIN EXFOLIATION [None]
  - VOMITING [None]
  - WEIGHT DECREASED [None]
